FAERS Safety Report 9271689 (Version 1)
Quarter: 2013Q2

REPORT INFORMATION
  Report Type: Report from Study
  Country: GB (occurrence: GB)
  Receive Date: 20130506
  Receipt Date: 20130506
  Transmission Date: 20140414
  Serious: Yes (Hospitalization)
  Sender: FDA-Public Use
  Company Number: GB-PFIZER INC-2013135708

PATIENT
  Age: 67 Year
  Sex: Female
  Weight: 59.9 kg

DRUGS (7)
  1. EPIRUBICIN HCL [Suspect]
     Indication: BREAST CANCER
     Dosage: 170 MG, UNK
     Dates: start: 20130405
  2. CYCLOPHOSPHAMIDE [Suspect]
     Indication: BREAST CANCER
     Dosage: 850 MG, UNK
     Dates: start: 20130405
  3. FLUOROURACIL [Suspect]
     Indication: BREAST CANCER
     Dosage: 850 MG, UNK
     Dates: start: 20130405
  4. PHENYTOIN [Concomitant]
     Dosage: 300 MG, UNK
  5. OMEPRAZOLE [Concomitant]
     Dosage: 20 MG, UNK
  6. HYPROMELLOSE [Concomitant]
     Dosage: 1 DF, UNK
  7. METHYLCELLULOSE [Concomitant]

REACTIONS (1)
  - Dyspnoea [Recovered/Resolved with Sequelae]
